FAERS Safety Report 13169635 (Version 5)
Quarter: 2019Q2

REPORT INFORMATION
  Report Type: Report from Study
  Country: PA (occurrence: PA)
  Receive Date: 20170201
  Receipt Date: 20190410
  Transmission Date: 20190711
  Serious: Yes (Other)
  Sender: FDA-Public Use
  Company Number: PHHY2015PA107091

PATIENT
  Sex: Male
  Weight: 168 kg

DRUGS (3)
  1. TASIGNA [Suspect]
     Active Substance: NILOTINIB
     Indication: CHRONIC MYELOID LEUKAEMIA
     Dosage: 200 MG, UNK
     Route: 065
     Dates: start: 201412
  2. TASIGNA [Suspect]
     Active Substance: NILOTINIB
     Dosage: 400 MG, (400MG IN THE MORNING AND 400 MG IN THE AFTERNOON EVERY 12 HRS)
     Route: 065
  3. TASIGNA [Suspect]
     Active Substance: NILOTINIB
     Dosage: UNK
     Route: 065

REACTIONS (9)
  - Swelling [Unknown]
  - Eye abscess [Recovered/Resolved]
  - Pain of skin [Unknown]
  - Amnesia [Unknown]
  - Acne [Not Recovered/Not Resolved]
  - Skin infection [Unknown]
  - Fatigue [Unknown]
  - Subcutaneous abscess [Recovered/Resolved]
  - Erythema [Unknown]
